FAERS Safety Report 9902035 (Version 1)
Quarter: 2014Q1

REPORT INFORMATION
  Report Type: Spontaneous
  Country: US (occurrence: US)
  Receive Date: 20140217
  Receipt Date: 20140217
  Transmission Date: 20141002
  Serious: No
  Sender: FDA-Public Use
  Company Number: US-GILEAD-2011-0047362

PATIENT
  Age: 32 Year
  Sex: Female

DRUGS (4)
  1. LETAIRIS [Suspect]
     Indication: PRODUCT USED FOR UNKNOWN INDICATION
     Dosage: 10 MG, UNK
     Route: 048
     Dates: start: 20110817
  2. EPOPROSTENOL [Concomitant]
  3. REVATIO [Concomitant]
  4. PREDNISONE [Concomitant]

REACTIONS (3)
  - Oxygen saturation decreased [Unknown]
  - Sinus operation [Unknown]
  - Dyspnoea [Unknown]
